FAERS Safety Report 22642140 (Version 1)
Quarter: 2023Q2

REPORT INFORMATION
  Report Type: Report from Study
  Country: US (occurrence: US)
  Receive Date: 20230626
  Receipt Date: 20230626
  Transmission Date: 20230722
  Serious: Yes (Hospitalization, Other)
  Sender: FDA-Public Use
  Company Number: US-ABBVIE-4289435

PATIENT
  Age: 69 Year
  Sex: Female

DRUGS (2)
  1. HUMIRA [Suspect]
     Active Substance: ADALIMUMAB
     Indication: Crohn^s disease
     Dosage: STRENGTH: 40 MILLIGRAM
     Route: 058
     Dates: start: 20180621
  2. HUMIRA [Suspect]
     Active Substance: ADALIMUMAB
     Route: 058

REACTIONS (13)
  - Large intestinal ulcer [Unknown]
  - Crohn^s disease [Unknown]
  - Plantar fasciitis [Unknown]
  - Muscle spasms [Unknown]
  - Abdominal pain [Unknown]
  - Colitis [Unknown]
  - Haemoglobin abnormal [Recovering/Resolving]
  - Abdominal adhesions [Unknown]
  - Unevaluable event [Unknown]
  - Post procedural sepsis [Recovering/Resolving]
  - Renal failure [Unknown]
  - Respiratory disorder [Unknown]
  - Internal haemorrhage [Recovering/Resolving]

NARRATIVE: CASE EVENT DATE: 20221029
